FAERS Safety Report 8225317-4 (Version None)
Quarter: 2012Q1

REPORT INFORMATION
  Report Type: 
  Country: None (occurrence: None)
  Receive Date: 20120321
  Receipt Date: 20120229
  Transmission Date: 20120608
  Serious: Yes (Other)
  Sender: FDA-Public Use
  Company Number: US-GLAXOSMITHKLINE-A0967950A

PATIENT
  Age: 81 Year
  Sex: Male
  Weight: 69.1 kg

DRUGS (3)
  1. ADVAIR DISKUS 100/50 [Suspect]
     Indication: PRODUCT USED FOR UNKNOWN INDICATION
     Route: 055
     Dates: start: 20080401
  2. SPIRIVA [Concomitant]
  3. XOPENEX [Concomitant]

REACTIONS (2)
  - PULMONARY FUNCTION TEST DECREASED [None]
  - PRODUCT QUALITY ISSUE [None]
